FAERS Safety Report 21455413 (Version 1)
Quarter: 2022Q4

REPORT INFORMATION
  Report Type: Spontaneous
  Country: SK (occurrence: SK)
  Receive Date: 20221014
  Receipt Date: 20221014
  Transmission Date: 20230113
  Serious: Yes (Death, Other)
  Sender: FDA-Public Use
  Company Number: SK-JNJFOC-20221015813

PATIENT

DRUGS (1)
  1. IMBRUVICA [Suspect]
     Active Substance: IBRUTINIB
     Indication: Chronic lymphocytic leukaemia
     Route: 048
     Dates: start: 20190101

REACTIONS (13)
  - Chronic lymphocytic leukaemia [Fatal]
  - Pneumonia [Fatal]
  - COVID-19 pneumonia [Fatal]
  - Pyelonephritis [Fatal]
  - Muscle spasms [Unknown]
  - Thrombocytopenia [Fatal]
  - Paraesthesia [Unknown]
  - Neutropenia [Fatal]
  - Herpes simplex [Unknown]
  - Herpes zoster [Unknown]
  - Dyspepsia [Unknown]
  - Haematuria [Unknown]
  - Renal neoplasm [Fatal]
